FAERS Safety Report 12135225 (Version 21)
Quarter: 2020Q1

REPORT INFORMATION
  Report Type: Report from Study
  Country: CA (occurrence: CA)
  Receive Date: 20160301
  Receipt Date: 20200129
  Transmission Date: 20200409
  Serious: Yes (Other)
  Sender: FDA-Public Use
  Company Number: PHHY2016CA026246

PATIENT
  Age: 84 Year
  Sex: Male

DRUGS (4)
  1. SANDOSTATIN LAR DEPOT [Suspect]
     Active Substance: OCTREOTIDE ACETATE
     Indication: NEUROENDOCRINE TUMOUR
     Dosage: 30 MG, QMO (EVERY 4 WEEKS)
     Route: 030
     Dates: start: 20151006
  2. SANDOSTATIN [Suspect]
     Active Substance: OCTREOTIDE ACETATE
     Indication: NEUROENDOCRINE TUMOUR
     Dosage: 100 UG, ONCE/SINGLE (TEST DOSE)
     Route: 058
     Dates: start: 20150918, end: 20150918
  3. SANDOSTATIN LAR DEPOT [Suspect]
     Active Substance: OCTREOTIDE ACETATE
     Dosage: 60 MG, QMO (EVERY 4 WEEKS)
     Route: 030
  4. SANDOSTATIN LAR DEPOT [Suspect]
     Active Substance: OCTREOTIDE ACETATE
     Dosage: 30 MG, QMO (EVERY 4 WEEKS)
     Route: 030
     Dates: start: 20181223

REACTIONS (20)
  - Malignant melanoma [Unknown]
  - Fatigue [Unknown]
  - Thrombosis [Unknown]
  - Blood pressure systolic increased [Unknown]
  - Skin lesion [Unknown]
  - Insomnia [Unknown]
  - Gastrointestinal pain [Unknown]
  - Abdominal discomfort [Unknown]
  - Second primary malignancy [Unknown]
  - Muscle spasms [Unknown]
  - Abdominal pain [Recovered/Resolved]
  - Abdominal pain [Unknown]
  - Nasopharyngitis [Unknown]
  - Cardiac disorder [Unknown]
  - Asthenia [Recovering/Resolving]
  - Mesenteric neoplasm [Recovering/Resolving]
  - Productive cough [Unknown]
  - Ill-defined disorder [Unknown]
  - Heart rate decreased [Unknown]
  - Poor peripheral circulation [Unknown]

NARRATIVE: CASE EVENT DATE: 2016
